FAERS Safety Report 10551432 (Version 2)
Quarter: 2015Q2

REPORT INFORMATION
  Report Type: Spontaneous
  Country: US (occurrence: None)
  Receive Date: 20141020
  Receipt Date: 20150420
  Transmission Date: 20150821
  Serious: No
  Sender: FDA-Public Use
  Company Number: AEGR000706

PATIENT
  Age: 57 Year
  Sex: Male
  Weight: 95.7 kg

DRUGS (14)
  1. COLCRYS [Suspect]
     Active Substance: COLCHICINE
     Indication: PRODUCT USED FOR UNKNOWN INDICATION
  2. ASPIRIN ( ACETYLSALICYLIC ACID) [Concomitant]
  3. LIVALO ( PITAVASTATIN CALCIUM) [Concomitant]
  4. JUXTAPID [Suspect]
     Active Substance: LOMITAPIDE MESYLATE
     Indication: PRODUCT USED FOR UNKNOWN INDICATION
     Route: 048
     Dates: start: 201401
  5. TEMAZEPAM. [Concomitant]
     Active Substance: TEMAZEPAM
  6. LISINOPRIL. [Concomitant]
     Active Substance: LISINOPRIL
  7. VITAMIN B6 ( PYRIDOXINE HYDROCHLORIDE) [Concomitant]
  8. COQ10 ( UBIDECARENONE) [Concomitant]
  9. MAGNESIUM GLUCONATE [Concomitant]
     Active Substance: MAGNESIUM GLUCONATE
  10. AMLODIPINE ( AMLODIPINE BESILATE) [Concomitant]
  11. FISH OIL [Concomitant]
     Active Substance: FISH OIL
  12. FOLIC ACID. [Concomitant]
     Active Substance: FOLIC ACID
  13. VITAMIN D3 ( COLECALCIFEROL) [Concomitant]
  14. TOPROL XL ( METOPROLOL SUCCINATE) [Concomitant]

REACTIONS (4)
  - Diarrhoea [None]
  - Vomiting [None]
  - Off label use [None]
  - Abdominal pain upper [None]

NARRATIVE: CASE EVENT DATE: 201401
